FAERS Safety Report 10529447 (Version 3)
Quarter: 2014Q4

REPORT INFORMATION
  Report Type: Report from Study
  Country: CA (occurrence: CA)
  Receive Date: 20141021
  Receipt Date: 20141104
  Transmission Date: 20150528
  Serious: Yes (Other)
  Sender: FDA-Public Use
  Company Number: CA-ROCHE-1288266

PATIENT
  Age: 53 Year
  Sex: Male

DRUGS (9)
  1. AVASTIN [Suspect]
     Active Substance: BEVACIZUMAB
     Indication: GLIOBLASTOMA MULTIFORME
     Route: 042
     Dates: start: 20130904, end: 20140521
  2. DECADRON [Concomitant]
     Active Substance: DEXAMETHASONE
  3. TEGRETAL [Concomitant]
     Active Substance: CARBAMAZEPINE
  4. TEMODAL [Concomitant]
     Active Substance: TEMOZOLOMIDE
  5. ZOFRAN [Concomitant]
     Active Substance: ONDANSETRON HYDROCHLORIDE
  6. AVASTIN [Suspect]
     Active Substance: BEVACIZUMAB
     Route: 042
     Dates: start: 20140905
  7. PANTOPRAZOLE [Concomitant]
     Active Substance: PANTOPRAZOLE SODIUM
  8. FRISIUM [Concomitant]
     Active Substance: CLOBAZAM
  9. SIMPONI [Concomitant]
     Active Substance: GOLIMUMAB
     Route: 065

REACTIONS (9)
  - Dizziness [Unknown]
  - Vein discolouration [Unknown]
  - Oedema peripheral [Unknown]
  - Malaise [Unknown]
  - Malignant neoplasm progression [Unknown]
  - Brain scan abnormal [Unknown]
  - Nasopharyngitis [Not Recovered/Not Resolved]
  - Radiation injury [Unknown]
  - Dyspnoea [Unknown]

NARRATIVE: CASE EVENT DATE: 201405
